FAERS Safety Report 26000833 (Version 1)
Quarter: 2025Q4

REPORT INFORMATION
  Report Type: Spontaneous
  Country: US (occurrence: US)
  Receive Date: 20251105
  Receipt Date: 20251105
  Transmission Date: 20260118
  Serious: No
  Sender: ANI
  Company Number: US-ANIPHARMA-2025-US-042770

PATIENT
  Age: 55 Year
  Sex: Female

DRUGS (11)
  1. CORTICOTROPIN [Suspect]
     Active Substance: CORTICOTROPIN
     Indication: Rheumatoid arthritis
     Dosage: 80 UNITS TWICE A WEEK
     Route: 058
  2. ATORVASTATIN CALCIUM [Concomitant]
     Active Substance: ATORVASTATIN CALCIUM
  3. XARELTO [Concomitant]
     Active Substance: RIVAROXABAN
  4. FAMOTIDINE [Concomitant]
     Active Substance: FAMOTIDINE
  5. MELATONIN [Concomitant]
     Active Substance: MELATONIN
  6. TYLENOL ARTHRITIS PAIN [Concomitant]
     Active Substance: ACETAMINOPHEN
  7. LEFLUNOMIDE [Concomitant]
     Active Substance: LEFLUNOMIDE
  8. SYNTHROID [Concomitant]
     Active Substance: LEVOTHYROXINE SODIUM
  9. PREDNISONE [Concomitant]
     Active Substance: PREDNISONE
  10. ALLOPURINOL [Concomitant]
     Active Substance: ALLOPURINOL
  11. PANTOPRAZOLE SODIUM [Concomitant]
     Active Substance: PANTOPRAZOLE SODIUM

REACTIONS (6)
  - Sinusitis [Not Recovered/Not Resolved]
  - Ear infection [Not Recovered/Not Resolved]
  - Hot flush [Not Recovered/Not Resolved]
  - Hyperhidrosis [Not Recovered/Not Resolved]
  - Nausea [Not Recovered/Not Resolved]
  - Abdominal discomfort [Not Recovered/Not Resolved]
